FAERS Safety Report 18113468 (Version 1)
Quarter: 2020Q3

REPORT INFORMATION
  Report Type: Spontaneous
  Country: US (occurrence: US)
  Receive Date: 20200805
  Receipt Date: 20200805
  Transmission Date: 20201103
  Serious: No
  Sender: FDA-Public Use
  Company Number: US-PFIZER INC-2020295906

PATIENT
  Age: 88 Year
  Sex: Male
  Weight: 76.2 kg

DRUGS (1)
  1. VYNDAMAX [Suspect]
     Active Substance: TAFAMIDIS
     Indication: CARDIAC AMYLOIDOSIS
     Dosage: 80 MG, DAILY (20MG 4 CAPSULES DAILY)
     Route: 048
     Dates: start: 201909

REACTIONS (2)
  - Weight decreased [Unknown]
  - Illness [Unknown]
